FAERS Safety Report 6971490-5 (Version None)
Quarter: 2010Q3

REPORT INFORMATION
  Report Type: 
  Country: None (occurrence: None)
  Receive Date: 20100903
  Receipt Date: 20100819
  Transmission Date: 20110219
  Serious: Yes (Death)
  Sender: FDA-Public Use
  Company Number: APP201000663

PATIENT
  Age: 65 Year
  Sex: Male

DRUGS (39)
  1. HEPARIN SODIUM INJECTION [Suspect]
     Indication: SURGERY
     Dosage: 5000 USP UNITS, 1 IN 1 ONCE, INTRAVENOUS, 3 ML TOTAL, INTRAVENOUS
     Route: 042
     Dates: start: 20071023, end: 20071023
  2. HEPARIN SODIUM INJECTION [Suspect]
     Indication: SURGERY
     Dosage: 5000 USP UNITS, 1 IN 1 ONCE, INTRAVENOUS, 3 ML TOTAL, INTRAVENOUS
     Route: 042
     Dates: start: 20071023
  3. HEPARIN SODIUM INJECTION [Suspect]
     Indication: SURGERY
     Dosage: 5000 USP UNITS, 1 IN 1 ONCE, INTRAVENOUS, 3 ML TOTAL, INTRAVENOUS
     Route: 042
     Dates: start: 20071212
  4. HEPARIN SODIUM INJECTION [Suspect]
     Indication: SURGERY
     Dosage: 5000 USP UNITS, 1 IN 1 ONCE, INTRAVENOUS, 3 ML TOTAL, INTRAVENOUS
     Route: 042
     Dates: start: 20071214
  5. NORVASC [Concomitant]
  6. METOPROLOL SUCCINATE [Concomitant]
  7. HYDRALAZINE HCL [Concomitant]
  8. DUONEB [Concomitant]
  9. CALCIUM CARBONATE [Concomitant]
  10. FERROUS SULFATE TAB [Concomitant]
  11. CATAPRES [Concomitant]
  12. VICODIN [Concomitant]
  13. COMBIVENT [Concomitant]
  14. LASIX [Concomitant]
  15. HYDROCORTONE [Concomitant]
  16. METHYLPREDISOLONE (METHYLPREDNISOLONE) [Concomitant]
  17. PEPCID [Concomitant]
  18. ACETAMINOPHEN [Concomitant]
  19. SODIUM CHLORIDE 0.9% [Concomitant]
  20. ALBUTEROL [Concomitant]
  21. IPRATROPIUM BROMIDE [Concomitant]
  22. HABITROL [Concomitant]
  23. RESTORIL (CHLORMEZANONE) [Concomitant]
  24. CLONIDINE [Concomitant]
  25. BUMEX [Concomitant]
  26. NITROPASTE (GLYCERYL TRINITRATE) [Concomitant]
  27. AMLODIPINE [Concomitant]
  28. NITRO-BID [Concomitant]
  29. LEVAQUIN [Concomitant]
  30. TIOTROPIUM (TIOTROPIUM) [Concomitant]
  31. FERROUS SULFATE TAB [Concomitant]
  32. ATIVAN [Concomitant]
  33. TUMS (CALCIUM CARBONATE) [Concomitant]
  34. INSULIN (INSULIN) [Concomitant]
  35. PROTONIX [Concomitant]
  36. ARANESP [Concomitant]
  37. COLACE (DOCUSATE SODIUM) [Concomitant]
  38. KAY CIEL DURA-TABS [Concomitant]
  39. TRAMADOL HCL [Concomitant]

REACTIONS (16)
  - ABDOMINAL PAIN [None]
  - ASTHENIA [None]
  - CHEST PAIN [None]
  - CHRONIC OBSTRUCTIVE PULMONARY DISEASE [None]
  - CONDITION AGGRAVATED [None]
  - DECREASED APPETITE [None]
  - DIARRHOEA [None]
  - DIZZINESS [None]
  - HYPERTENSIVE CRISIS [None]
  - INSOMNIA [None]
  - LETHARGY [None]
  - NAUSEA [None]
  - RENAL FAILURE ACUTE [None]
  - RENAL FAILURE CHRONIC [None]
  - TREATMENT NONCOMPLIANCE [None]
  - VOMITING [None]
